FAERS Safety Report 5355432-4 (Version None)
Quarter: 2007Q2

REPORT INFORMATION
  Report Type: 
  Country: None (occurrence: None)
  Receive Date: 20070530
  Receipt Date: 20070118
  Transmission Date: 20071010
  Serious: Yes (Hospitalization, Other)
  Sender: FDA-Public Use
  Company Number: US200609003436

PATIENT
  Age: 38 Year
  Sex: Female
  Weight: 49.9 kg

DRUGS (12)
  1. ZYPREXA [Suspect]
     Indication: MENTAL DISORDER
     Dosage: SEE IMAGE
     Dates: start: 20010101, end: 20030101
  2. ZYPREXA [Suspect]
     Indication: MENTAL DISORDER
     Dosage: SEE IMAGE
     Dates: start: 20010101, end: 20030101
  3. ABILIFY [Concomitant]
  4. SEROQUEL [Concomitant]
  5. GEODON (ZIPIRASIDONE HYDROCHLORIDE) [Concomitant]
  6. THORAZINE [Concomitant]
  7. CARBAMAZEPINE [Concomitant]
  8. DEPAKOTE [Concomitant]
  9. WELLBUTRIN [Concomitant]
  10. PROZAC [Concomitant]
  11. REMERON [Concomitant]
  12. PAXIL [Concomitant]

REACTIONS (1)
  - PANCREATITIS [None]
